FAERS Safety Report 23510846 (Version 1)
Quarter: 2024Q1

REPORT INFORMATION
  Report Type: Spontaneous
  Country: CN (occurrence: CN)
  Receive Date: 20240212
  Receipt Date: 20240212
  Transmission Date: 20240409
  Serious: Yes (Hospitalization, Other)
  Sender: FDA-Public Use
  Company Number: None

PATIENT
  Age: 24 Year
  Sex: Female
  Weight: 59 kg

DRUGS (4)
  1. IFOSFAMIDE [Suspect]
     Active Substance: IFOSFAMIDE
     Indication: Soft tissue sarcoma
     Dosage: 3.5 G, ONE TIME IN ONE DAY
     Route: 041
     Dates: start: 20231222, end: 20231224
  2. MESNA [Suspect]
     Active Substance: MESNA
     Indication: Soft tissue sarcoma
     Dosage: 0.4 G, THREE TIMES IN ONE DAY
     Route: 042
     Dates: start: 20231222, end: 20231225
  3. EPIRUBICIN HYDROCHLORIDE [Suspect]
     Active Substance: EPIRUBICIN HYDROCHLORIDE
     Indication: Soft tissue sarcoma
     Dosage: 60 MG, ONE TIME IN ONE DAY
     Route: 041
     Dates: start: 20231222, end: 20231223
  4. EPIRUBICIN HYDROCHLORIDE [Suspect]
     Active Substance: EPIRUBICIN HYDROCHLORIDE
     Indication: Neoplasm malignant

REACTIONS (2)
  - Myelosuppression [Recovering/Resolving]
  - Granulocyte count decreased [Unknown]

NARRATIVE: CASE EVENT DATE: 20240103
